FAERS Safety Report 4609901-2 (Version None)
Quarter: 2005Q1

REPORT INFORMATION
  Report Type: 
  Country: None (occurrence: None)
  Receive Date: 20050316
  Receipt Date: 20050303
  Transmission Date: 20050727
  Serious: Yes (Other)
  Sender: FDA-Public Use
  Company Number: GB-JNJFOC-20050301468

PATIENT
  Sex: Male

DRUGS (3)
  1. REMICADE [Suspect]
     Dosage: 2ND INFUSION - THERAPY DATE UNKNOWN
     Route: 042
  2. REMICADE [Suspect]
     Indication: CROHN'S DISEASE
     Route: 042
  3. METHOTREXATE [Concomitant]

REACTIONS (1)
  - MALIGNANT SOFT TISSUE NEOPLASM [None]
